FAERS Safety Report 8065542-9 (Version None)
Quarter: 2012Q1

REPORT INFORMATION
  Report Type: 
  Country: None (occurrence: None)
  Receive Date: 20120124
  Receipt Date: 20120112
  Transmission Date: 20120608
  Serious: Yes (Other)
  Sender: FDA-Public Use
  Company Number: BR-AMGEN-BRASP2012003825

PATIENT
  Age: 30 Year
  Sex: Male
  Weight: 106 kg

DRUGS (6)
  1. FOLIC ACID [Concomitant]
     Dosage: UNK
  2. PREDNISOLONE [Concomitant]
     Dosage: UNK
  3. METHOTREXATE [Concomitant]
     Dosage: UNK
  4. CEPHALEXIN [Concomitant]
     Dosage: UNK, EVERY 6 HOURS
  5. AZITHROMYCIN [Concomitant]
     Dosage: UNK
  6. ENBREL [Suspect]
     Indication: RHEUMATOID ARTHRITIS
     Dosage: 50 MG, 1X/WEEK
     Route: 058
     Dates: start: 20101101

REACTIONS (6)
  - ALCOHOL INTERACTION [None]
  - PAIN [None]
  - FURUNCLE [None]
  - CHOLELITHIASIS [None]
  - PYREXIA [None]
  - ABDOMINAL PAIN [None]
